FAERS Safety Report 4365532-3 (Version None)
Quarter: 2004Q2

REPORT INFORMATION
  Report Type: 
  Country: None (occurrence: None)
  Receive Date: 20040526
  Receipt Date: 20040430
  Transmission Date: 20050107
  Serious: Yes (Disabling)
  Sender: FDA-Public Use
  Company Number: GB-GLAXOSMITHKLINE-B0331617A

PATIENT
  Age: 40 Year
  Sex: Male
  Weight: 83 kg

DRUGS (6)
  1. ZIAGEN [Suspect]
     Indication: HIV INFECTION
     Dosage: 300MG TWICE PER DAY
     Route: 048
     Dates: start: 20020101
  2. ACETAMINOPHEN [Concomitant]
     Route: 065
  3. STAVUDINE [Concomitant]
     Route: 065
  4. DIDANOSINE [Concomitant]
     Route: 065
  5. EFAVIRENZ [Concomitant]
     Route: 065
  6. TENOFOVIR [Concomitant]

REACTIONS (3)
  - ARTHRALGIA [None]
  - MUSCULOSKELETAL STIFFNESS [None]
  - PERIARTHRITIS [None]
